FAERS Safety Report 4317977-5 (Version None)
Quarter: 2004Q1

REPORT INFORMATION
  Report Type: 
  Country: None (occurrence: None)
  Receive Date: 20040316
  Receipt Date: 20040305
  Transmission Date: 20041129
  Serious: Yes (Hospitalization, Disabling)
  Sender: FDA-Public Use
  Company Number: PHNU2004DE01131

PATIENT
  Age: 60 Year
  Sex: Female
  Weight: 71 kg

DRUGS (3)
  1. SANDIMMUNE [Suspect]
     Indication: RENAL TRANSPLANT
     Dosage: 350 MG DAILY
     Route: 048
     Dates: start: 20010526, end: 20030312
  2. CELLCEPT [Concomitant]
     Indication: IMMUNOSUPPRESSION
     Dosage: 2000 MG DAILY
     Dates: start: 20010526, end: 20030312
  3. DECORTIN [Concomitant]
     Indication: IMMUNOSUPPRESSION
     Dosage: 15 MG DAILY
     Dates: start: 20010526, end: 20030312

REACTIONS (9)
  - ACUTE PSYCHOSIS [None]
  - FACIAL PALSY [None]
  - GASTRITIS EROSIVE [None]
  - GLOMERULONEPHRITIS [None]
  - GRAFT LOSS [None]
  - HAEMODIALYSIS [None]
  - NEPHRECTOMY [None]
  - PYELONEPHRITIS [None]
  - URINARY TRACT INFECTION [None]
